FAERS Safety Report 4343091-9 (Version None)
Quarter: 2004Q2

REPORT INFORMATION
  Report Type: 
  Country: None (occurrence: None)
  Receive Date: 20040420
  Receipt Date: 20040412
  Transmission Date: 20050107
  Serious: Yes (Death)
  Sender: FDA-Public Use
  Company Number: 2004S1000777

PATIENT
  Age: 53 Year
  Sex: Male

DRUGS (4)
  1. CLOZAPINE [Suspect]
     Dosage: 300 MG, BID, ORAL
     Route: 048
     Dates: start: 20030529, end: 20040303
  2. ATENOLOL [Concomitant]
  3. DIVALPROEX SODIUM [Concomitant]
  4. TRAZODONE HCL [Concomitant]

REACTIONS (1)
  - DEATH [None]
